FAERS Safety Report 7611400-0 (Version None)
Quarter: 2011Q3

REPORT INFORMATION
  Report Type: 
  Country: None (occurrence: None)
  Receive Date: 20110715
  Receipt Date: 20110712
  Transmission Date: 20111222
  Serious: Yes (Life-Threatening, Congenital Anomaly, Other)
  Sender: FDA-Public Use
  Company Number: US-PFIZER INC-2008049840

PATIENT
  Sex: Female

DRUGS (1)
  1. ZOLOFT [Suspect]
     Dosage: 25 MG, UNK
     Route: 064
     Dates: start: 19930101

REACTIONS (21)
  - MATERNAL DRUGS AFFECTING FOETUS [None]
  - HYPERPARATHYROIDISM SECONDARY [None]
  - URINARY TRACT INFECTION [None]
  - RENAL IMPAIRMENT [None]
  - BRONCHITIS [None]
  - RENAL FAILURE [None]
  - VAGINAL INFECTION [None]
  - VAGINAL ULCERATION [None]
  - MEAN CELL VOLUME DECREASED [None]
  - MATERNAL EXPOSURE DURING PREGNANCY [None]
  - RENAL CYST [None]
  - OTITIS EXTERNA [None]
  - PYELOCALIECTASIS [None]
  - BACTERIAL INFECTION [None]
  - SINGLE FUNCTIONAL KIDNEY [None]
  - CONGENITAL UTERINE ANOMALY [None]
  - VIRAL INFECTION [None]
  - CANDIDA NAPPY RASH [None]
  - CONGENITAL ANOMALY [None]
  - BLOOD GLUCOSE INCREASED [None]
  - HYPERTENSION [None]
